FAERS Safety Report 6823953-0 (Version None)
Quarter: 2010Q3

REPORT INFORMATION
  Report Type: 
  Country: None (occurrence: None)
  Receive Date: 20100708
  Receipt Date: 20060925
  Transmission Date: 20110219
  Serious: No
  Sender: FDA-Public Use
  Company Number: US-PFIZER INC-2006115053

PATIENT
  Sex: Female
  Weight: 77.11 kg

DRUGS (12)
  1. CHANTIX [Suspect]
     Indication: SMOKING CESSATION THERAPY
     Route: 048
     Dates: start: 20060827, end: 20060923
  2. INFLUENZA VACCINE [Suspect]
     Dates: start: 20060920, end: 20060920
  3. PNEUMOCOCCAL VACCINE [Suspect]
  4. NEXIUM [Concomitant]
  5. ASACOL [Concomitant]
  6. PREMPRO [Concomitant]
  7. ZYRTEC [Concomitant]
  8. MONTELUKAST [Concomitant]
  9. FLONASE [Concomitant]
  10. ASTELIN [Concomitant]
  11. FIORICET [Concomitant]
     Indication: MIGRAINE
     Dosage: AS NEEDED
  12. GUAIFENESIN [Concomitant]

REACTIONS (6)
  - CHILLS [None]
  - DYSPNOEA [None]
  - HEADACHE [None]
  - HOT FLUSH [None]
  - INJECTION SITE RASH [None]
  - NAUSEA [None]
